FAERS Safety Report 5871986-3 (Version None)
Quarter: 2008Q3

REPORT INFORMATION
  Report Type: 
  Country: None (occurrence: None)
  Receive Date: 20080904
  Receipt Date: 20080904
  Transmission Date: 20090109
  Serious: Yes (Hospitalization)
  Sender: FDA-Public Use
  Company Number: None

PATIENT
  Age: 53 Year
  Sex: Female
  Weight: 36 kg

DRUGS (2)
  1. ETRAVIRINE 100MG    J+J [Suspect]
     Indication: HIV INFECTION
     Dosage: 200MG BID PO
     Route: 048
     Dates: start: 20080301, end: 20080414
  2. ENFUVIRTIDE 90MG ROCHE [Suspect]
     Indication: HIV INFECTION
     Dosage: 90MG BID SQ
     Route: 058
     Dates: start: 20080301, end: 20080414

REACTIONS (5)
  - CONFUSIONAL STATE [None]
  - CONVULSION [None]
  - DELIRIUM [None]
  - HALLUCINATION [None]
  - PSYCHOTIC DISORDER [None]
